FAERS Safety Report 12872800 (Version 2)
Quarter: 2018Q1

REPORT INFORMATION
  Report Type: Spontaneous
  Country: JP (occurrence: JP)
  Receive Date: 20161021
  Receipt Date: 20180215
  Transmission Date: 20180508
  Serious: Yes (Hospitalization, Other)
  Sender: FDA-Public Use
  Company Number: JP-PFIZER INC-2016179936

PATIENT
  Age: 14 Year
  Sex: Male
  Weight: 55 kg

DRUGS (5)
  1. BENEFIX [Suspect]
     Active Substance: COAGULATION FACTOR IX RECOMBINANT HUMAN\ISOPROPYL ALCOHOL
     Dosage: 3000 IU, 1X/DAY
     Route: 042
     Dates: end: 20160531
  2. BENEFIX [Suspect]
     Active Substance: COAGULATION FACTOR IX RECOMBINANT HUMAN\ISOPROPYL ALCOHOL
     Dosage: 2000 IU, 1X/DAY
     Route: 042
     Dates: start: 20160802
  3. BENEFIX [Suspect]
     Active Substance: COAGULATION FACTOR IX RECOMBINANT HUMAN\ISOPROPYL ALCOHOL
     Dosage: 8000 IU, 1X/DAY
     Route: 042
     Dates: start: 20160603, end: 20160705
  4. BENEFIX [Suspect]
     Active Substance: COAGULATION FACTOR IX RECOMBINANT HUMAN\ISOPROPYL ALCOHOL
     Indication: FACTOR IX DEFICIENCY
     Dosage: 2000 IU, 1X/DAY
     Route: 042
     Dates: start: 20151205, end: 20160127
  5. BENEFIX [Suspect]
     Active Substance: COAGULATION FACTOR IX RECOMBINANT HUMAN\ISOPROPYL ALCOHOL
     Dosage: 4000 IU, 1X/DAY
     Route: 042
     Dates: start: 20160708, end: 20160729

REACTIONS (6)
  - Eczema [Recovered/Resolved]
  - Incorrect drug administration rate [Unknown]
  - Immediate post-injection reaction [Unknown]
  - Muscle haemorrhage [Recovered/Resolved]
  - Factor IX inhibition [Unknown]
  - Haemarthrosis [Recovered/Resolved]

NARRATIVE: CASE EVENT DATE: 20160319
